FAERS Safety Report 5318031-6 (Version None)
Quarter: 2007Q2

REPORT INFORMATION
  Report Type: 
  Country: None (occurrence: None)
  Receive Date: 20070507
  Receipt Date: 20070423
  Transmission Date: 20071010
  Serious: Yes (Hospitalization)
  Sender: FDA-Public Use
  Company Number: GB-ROCHE-494238

PATIENT
  Age: 46 Year
  Sex: Female
  Weight: 76 kg

DRUGS (2)
  1. CAPECITABINE [Suspect]
     Indication: BREAST CANCER
     Dosage: REPORTED TO HAVE RECEIVED 1 CYCLE WITH DAY 1 OF THE CYCLE PRIOR TO THE ONSET OF THE EVENTS REPORTE+
     Route: 048
     Dates: start: 20070110
  2. EPIRUBICIN [Suspect]
     Indication: BREAST CANCER
     Dosage: REPORTED TO HAVE RECEIVED 4 CYCLES WITH DAY 1 OF THE CYCLE PRIOR TO THE ONSET OF THE EVENTS REPORTE+
     Route: 042
     Dates: start: 20070110

REACTIONS (3)
  - COUGH [None]
  - LOWER RESPIRATORY TRACT INFECTION [None]
  - PYREXIA [None]
